FAERS Safety Report 18245404 (Version 1)
Quarter: 2020Q3

REPORT INFORMATION
  Report Type: Spontaneous
  Country: US (occurrence: US)
  Receive Date: 20200908
  Receipt Date: 20200908
  Transmission Date: 20201103
  Serious: No
  Sender: FDA-Public Use
  Company Number: US-SA-2020SA243651

PATIENT

DRUGS (15)
  1. QVAR [Concomitant]
     Active Substance: BECLOMETHASONE DIPROPIONATE
     Indication: ASTHMA
     Dosage: UNK UNK, PRN
  2. VITAMIN B12 [VITAMIN B12 NOS] [Suspect]
     Active Substance: CYANOCOBALAMIN
  3. LEXIPRON [Concomitant]
     Indication: ASTHMA
     Dosage: UNK UNK, PRN
  4. ROSUVASTATIN. [Concomitant]
     Active Substance: ROSUVASTATIN
     Indication: BLOOD CHOLESTEROL
     Dosage: 10 MG, HS
  5. HYDROCHLOROTHIAZIDE. [Concomitant]
     Active Substance: HYDROCHLOROTHIAZIDE
     Indication: HYPERTENSION
  6. PROAIR HFA [Concomitant]
     Active Substance: ALBUTEROL SULFATE
     Indication: ASTHMA
     Dosage: UNK UNK, PRN
  7. VITAMIN D [VITAMIN D NOS] [Suspect]
     Active Substance: VITAMIN D NOS
     Route: 065
  8. AZILECT [Concomitant]
     Active Substance: RASAGILINE MESYLATE
     Indication: PARKINSON^S DISEASE
  9. PEPCID [Concomitant]
     Active Substance: FAMOTIDINE
     Indication: ASTHMA
     Dosage: UNK UNK, PRN
  10. AUBAGIO [Suspect]
     Active Substance: TERIFLUNOMIDE
     Route: 065
  11. TOPROL XL [Concomitant]
     Active Substance: METOPROLOL SUCCINATE
     Indication: HYPERTENSION
  12. MIRAPEX [Concomitant]
     Active Substance: PRAMIPEXOLE DIHYDROCHLORIDE
     Indication: PARKINSON^S DISEASE
  13. CARBIDOPA AND LEVODOPA [Concomitant]
     Active Substance: CARBIDOPA\LEVODOPA
     Indication: ASTHMA
     Dosage: UNK UNK, PRN
  14. SINGULAIR [Concomitant]
     Active Substance: MONTELUKAST SODIUM
     Indication: ASTHMA
     Dosage: UNK UNK, PRN
  15. CLARITINE [Concomitant]
     Active Substance: LORATADINE
     Indication: ASTHMA
     Dosage: UNK UNK, PRN

REACTIONS (2)
  - Alopecia [Unknown]
  - Chromaturia [Unknown]
